FAERS Safety Report 10154414 (Version 3)
Quarter: 2014Q3

REPORT INFORMATION
  Report Type: Spontaneous
  Country: JP (occurrence: None)
  Receive Date: 20140502
  Receipt Date: 20140729
  Transmission Date: 20150326
  Serious: Yes (Other)
  Sender: FDA-Public Use
  Company Number: AE-SPE-2014-014

PATIENT
  Age: 21 Year
  Sex: Female

DRUGS (3)
  1. MEIACT MS [Suspect]
     Active Substance: CEFDITOREN PIVOXIL
     Indication: TONSILLITIS
     Dosage: 100 MG X 1  P.O.
     Route: 048
     Dates: start: 20140408, end: 20140408
  2. ANTIBIOTIC-RESISTANT LACTIC ACID BACTERIA [Concomitant]
  3. SALICYLAMIDE/ACETAMINOPHEN/ANHYDROUS CAFFEINE [Concomitant]
     Active Substance: ACETAMINOPHEN\CAFFEINE\SALICYLAMIDE

REACTIONS (6)
  - Hypoglycaemia [None]
  - Decreased appetite [None]
  - Hypocarnitinaemia [None]
  - Dysstasia [None]
  - Asthenia [None]
  - Vomiting [None]

NARRATIVE: CASE EVENT DATE: 20140408
